FAERS Safety Report 18788660 (Version 1)
Quarter: 2021Q1

REPORT INFORMATION
  Report Type: Other
  Country: CA (occurrence: CA)
  Receive Date: 20210125
  Receipt Date: 20210125
  Transmission Date: 20210419
  Serious: Yes (Hospitalization, Other)
  Sender: FDA-Public Use
  Company Number: CA-CELLTRION INC.-2021CA000567

PATIENT

DRUGS (2)
  1. RITUXIMAB (UNKNOWN) [Suspect]
     Active Substance: RITUXIMAB
     Indication: HAIRY CELL LEUKAEMIA
     Route: 042
  2. CLADRIBINE. [Concomitant]
     Active Substance: CLADRIBINE

REACTIONS (18)
  - Benign prostatic hyperplasia [Recovered/Resolved]
  - Off label use [Recovered/Resolved]
  - BRAF gene mutation [Recovered/Resolved]
  - Fall [Recovered/Resolved]
  - Liver palpable [Recovered/Resolved]
  - Dyspnoea exertional [Recovered/Resolved]
  - Pancytopenia [Recovered/Resolved]
  - Overgrowth bacterial [Recovered/Resolved]
  - Rash [Recovered/Resolved]
  - Femur fracture [Recovered/Resolved]
  - Asthenia [Recovered/Resolved]
  - Fatigue [Recovered/Resolved]
  - Gastrointestinal lymphoma [Recovered/Resolved]
  - Agranulocytosis [Recovered/Resolved]
  - Osteoporosis [Recovered/Resolved]
  - Anaemia [Recovered/Resolved]
  - Pruritus [Recovered/Resolved]
  - Product use in unapproved indication [Recovered/Resolved]
